FAERS Safety Report 7295905-0 (Version None)
Quarter: 2011Q1

REPORT INFORMATION
  Report Type: 
  Country: None (occurrence: None)
  Receive Date: 20110211
  Receipt Date: 20110211
  Transmission Date: 20110831
  Serious: Yes (Other)
  Sender: FDA-Public Use
  Company Number: None

PATIENT
  Sex: Female
  Weight: 85.2762 kg

DRUGS (6)
  1. VITAMIN D [Concomitant]
  2. ZOLOFT [Concomitant]
  3. FOSAMAX [Suspect]
     Indication: OSTEOPENIA
     Dosage: 70MG WEEKLY BY MOUTH
     Route: 048
     Dates: start: 20000401, end: 20100401
  4. NAPROXEN [Interacting]
  5. SIMVASTATIN [Concomitant]
  6. PRILOSEC [Concomitant]

REACTIONS (2)
  - PATHOLOGICAL FRACTURE [None]
  - FEMUR FRACTURE [None]
